FAERS Safety Report 6969902-6 (Version None)
Quarter: 2010Q3

REPORT INFORMATION
  Report Type: 
  Country: None (occurrence: None)
  Receive Date: 20100908
  Receipt Date: 20100830
  Transmission Date: 20110219
  Serious: Yes (Hospitalization)
  Sender: FDA-Public Use
  Company Number: DE-TEVA-247032ISR

PATIENT
  Age: 25 Year
  Sex: Female

DRUGS (2)
  1. METOCLOPRAMIDE [Suspect]
  2. TRAMADOL HCL [Suspect]
     Indication: PAIN

REACTIONS (5)
  - COLONIC PSEUDO-OBSTRUCTION [None]
  - ENCEPHALOPATHY [None]
  - HYPERTENSION [None]
  - INAPPROPRIATE ANTIDIURETIC HORMONE SECRETION [None]
  - PORPHYRIA [None]
